FAERS Safety Report 8702675 (Version 2)
Quarter: 2015Q1

REPORT INFORMATION
  Report Type: Report from Study
  Country: US (occurrence: US)
  Receive Date: 20120803
  Receipt Date: 20150219
  Transmission Date: 20150721
  Serious: Yes (Other)
  Sender: FDA-Public Use
  Company Number: US-ROCHE-1094871

PATIENT
  Sex: Female

DRUGS (17)
  1. XOPENEX [Concomitant]
     Active Substance: LEVALBUTEROL HYDROCHLORIDE
  2. SINGULAIR [Concomitant]
     Active Substance: MONTELUKAST SODIUM
  3. ZYRTEC [Concomitant]
     Active Substance: CETIRIZINE HYDROCHLORIDE
  4. XOLAIR [Suspect]
     Active Substance: OMALIZUMAB
     Indication: ASTHMA
     Route: 058
  5. PROTONIX (UNITED STATES) [Concomitant]
  6. BIAXIN [Concomitant]
     Active Substance: CLARITHROMYCIN
  7. CARDIZEM [Concomitant]
     Active Substance: DILTIAZEM HYDROCHLORIDE
  8. ASPIRIN. [Concomitant]
     Active Substance: ASPIRIN
  9. ASMANEX [Concomitant]
     Active Substance: MOMETASONE FUROATE
  10. NITRO PATCH [Concomitant]
  11. XOLAIR [Suspect]
     Active Substance: OMALIZUMAB
     Indication: RHINITIS ALLERGIC
  12. AMBIEN [Concomitant]
     Active Substance: ZOLPIDEM TARTRATE
  13. ADVAIR HFA [Concomitant]
     Active Substance: FLUTICASONE PROPIONATE\SALMETEROL XINAFOATE
     Dosage: 500/50
     Route: 065
  14. FLONASE (UNITED STATES) [Concomitant]
  15. EFFEXOR [Concomitant]
     Active Substance: VENLAFAXINE HYDROCHLORIDE
  16. CRESTOR [Concomitant]
     Active Substance: ROSUVASTATIN CALCIUM
  17. CODEINE [Concomitant]
     Active Substance: CODEINE

REACTIONS (14)
  - Snoring [Unknown]
  - Tremor [Unknown]
  - Malaise [Unknown]
  - Sinusitis [Unknown]
  - Swelling face [Unknown]
  - Burnout syndrome [Unknown]
  - Dyspnoea [Unknown]
  - Fatigue [Unknown]
  - Lower respiratory tract infection [Unknown]
  - Myocardial infarction [Unknown]
  - Arthropathy [Unknown]
  - Weight increased [Unknown]
  - Limb injury [Unknown]
  - Upper-airway cough syndrome [Unknown]
